FAERS Safety Report 4418040-5 (Version None)
Quarter: 2004Q3

REPORT INFORMATION
  Report Type: 
  Country: None (occurrence: None)
  Receive Date: 20040803
  Receipt Date: 20040726
  Transmission Date: 20050211
  Serious: Yes (Life-Threatening)
  Sender: FDA-Public Use
  Company Number: 2001082022NO

PATIENT
  Age: 59 Year
  Sex: Female
  Weight: 85 kg

DRUGS (1)
  1. TAMOXIFEN (COMPARATOR-TAMOXIFEN) [Suspect]
     Indication: BREAST CANCER
     Dosage: 20 MG, QD, ORAL
     Route: 048
     Dates: start: 20000314, end: 20011121

REACTIONS (3)
  - PAIN [None]
  - PULMONARY EMBOLISM [None]
  - RESPIRATORY DISTRESS [None]
